FAERS Safety Report 20520834 (Version 1)
Quarter: 2022Q1

REPORT INFORMATION
  Report Type: Spontaneous
  Country: US (occurrence: US)
  Receive Date: 20220225
  Receipt Date: 20220225
  Transmission Date: 20220423
  Serious: No
  Sender: FDA-Public Use
  Company Number: US-PFIZER INC-202200268303

PATIENT
  Age: 13 Year
  Sex: Female

DRUGS (1)
  1. LIOTHYRONINE SODIUM [Suspect]
     Active Substance: LIOTHYRONINE SODIUM
     Dosage: UNK

REACTIONS (5)
  - Peripheral swelling [Unknown]
  - Skin disorder [Unknown]
  - Skin tightness [Unknown]
  - Heavy menstrual bleeding [Unknown]
  - Anaemia [Unknown]
